FAERS Safety Report 19250748 (Version 3)
Quarter: 2021Q3

REPORT INFORMATION
  Report Type: Spontaneous
  Country: DK (occurrence: DK)
  Receive Date: 20210513
  Receipt Date: 20210813
  Transmission Date: 20211014
  Serious: Yes (Hospitalization, Other)
  Sender: FDA-Public Use
  Company Number: DK-ACCORD-224935

PATIENT
  Age: 67 Year
  Sex: Female
  Weight: 62.7 kg

DRUGS (35)
  1. OXALIPLATIN. [Suspect]
     Active Substance: OXALIPLATIN
     Indication: DIFFUSE LARGE B-CELL LYMPHOMA STAGE IV
     Dosage: DOSE DELAYED??CONCENTRATE AND SOLVENT FOR CONCENTRATE FOR SOLUTION FOR INFUSION
     Route: 042
     Dates: start: 20210412, end: 20210412
  2. CETIRIZINE/CETIRIZINE HYDROCHLORIDE [Concomitant]
     Active Substance: CETIRIZINE HYDROCHLORIDE
     Indication: PREMEDICATION
     Route: 048
     Dates: start: 20210412, end: 20210412
  3. PARACETAMOL [Concomitant]
     Active Substance: ACETAMINOPHEN
     Indication: PREMEDICATION
     Route: 048
     Dates: start: 20210412, end: 20210412
  4. PREGABALIN. [Concomitant]
     Active Substance: PREGABALIN
     Dates: start: 20190930
  5. DEXAMETHASONE. [Concomitant]
     Active Substance: DEXAMETHASONE
     Dates: start: 20210514, end: 20210601
  6. PARACETAMOL [Concomitant]
     Active Substance: ACETAMINOPHEN
     Dates: start: 20210412, end: 20210420
  7. UNIKALK BASIC [Concomitant]
     Dates: start: 20200611
  8. PREDNISOLONE. [Concomitant]
     Active Substance: PREDNISOLONE
     Dates: start: 20210412, end: 20210423
  9. PANODIL [Concomitant]
     Active Substance: ACETAMINOPHEN
     Dates: start: 20210722, end: 20210722
  10. PREDNISOLONE. [Concomitant]
     Active Substance: PREDNISOLONE
     Dates: start: 20210412, end: 20210509
  11. AMOXICILLIN. [Concomitant]
     Active Substance: AMOXICILLIN
     Dates: start: 20210503
  12. SOLU?CORTEF [Concomitant]
     Active Substance: HYDROCORTISONE SODIUM SUCCINATE
     Dates: start: 20210614
  13. EPCORITAMAB. [Suspect]
     Active Substance: EPCORITAMAB
     Indication: DIFFUSE LARGE B-CELL LYMPHOMA STAGE IV
     Dosage: WEEKLY
     Route: 058
     Dates: start: 20210429
  14. FURIX [Concomitant]
     Dates: start: 20210227
  15. METOCLOPRAMIDE. [Concomitant]
     Active Substance: METOCLOPRAMIDE
     Dates: start: 20201027
  16. GLUCOSE/POTASSIUM CHLORIDE/SODIUM CHLORIDE [Concomitant]
     Active Substance: DEXTROSE\POTASSIUM CHLORIDE\SODIUM CHLORIDE
     Dates: start: 20210417
  17. EPCORITAMAB. [Suspect]
     Active Substance: EPCORITAMAB
     Indication: DIFFUSE LARGE B-CELL LYMPHOMA STAGE IV
     Dosage: PRIMING DOSE: 0.16 MILLIGRAM?DOSE DELAYED
     Route: 058
     Dates: start: 20210412, end: 20210412
  18. FLUCONAZOLE. [Concomitant]
     Active Substance: FLUCONAZOLE
     Dates: start: 20210224
  19. EPCORITAMAB. [Suspect]
     Active Substance: EPCORITAMAB
     Indication: DIFFUSE LARGE B-CELL LYMPHOMA STAGE IV
     Dosage: INTERMEDIATE DOSE: 0.8 MILLIGRAM
     Route: 058
     Dates: start: 20210420, end: 20210420
  20. GEMCITABINE/GEMCITABINE HYDROCHLORIDE [Suspect]
     Active Substance: GEMCITABINE\GEMCITABINE HYDROCHLORIDE
     Indication: DIFFUSE LARGE B-CELL LYMPHOMA STAGE IV
     Dosage: DOSE DELAYED, 1Q4W
     Route: 042
     Dates: start: 20210412, end: 20210412
  21. ZOLEDRONIC ACID [Concomitant]
     Active Substance: ZOLEDRONIC ACID
     Indication: PRODUCT USED FOR UNKNOWN INDICATION
     Route: 042
     Dates: start: 20200902
  22. TRAMADOL. [Concomitant]
     Active Substance: TRAMADOL
     Dates: start: 20210414
  23. LEVOFLOXACIN. [Concomitant]
     Active Substance: LEVOFLOXACIN
     Dates: start: 20210506
  24. CLEMASTINE [Concomitant]
     Active Substance: CLEMASTINE
     Dosage: ONGOING
     Dates: start: 20210706
  25. KALIUM CHLORID [Concomitant]
     Active Substance: POTASSIUM CHLORIDE
     Dates: start: 20210227
  26. MORPHINE [Concomitant]
     Active Substance: MORPHINE
     Dates: start: 20201024
  27. POTASSIUM PHOSPHATE DIBASIC [Concomitant]
     Active Substance: POTASSIUM PHOSPHATE, DIBASIC
     Dosage: ONGOING
     Dates: start: 20210423
  28. PARACETAMOL [Concomitant]
     Active Substance: ACETAMINOPHEN
     Route: 048
     Dates: start: 20190815
  29. FRAGMIN [Concomitant]
     Active Substance: DALTEPARIN SODIUM
     Dates: start: 20210325
  30. METHYLPREDNISOLONE. [Concomitant]
     Active Substance: METHYLPREDNISOLONE
     Dates: start: 20210521
  31. CETIRIZINE/CETIRIZINE HYDROCHLORIDE [Concomitant]
     Active Substance: CETIRIZINE HYDROCHLORIDE
     Dates: start: 20210412, end: 20210420
  32. ONDANSETRON [Concomitant]
     Active Substance: ONDANSETRON
     Dates: start: 20201027
  33. ALLOPURINOL. [Concomitant]
     Active Substance: ALLOPURINOL
     Dates: start: 20210408
  34. CLEMASTINE [Concomitant]
     Active Substance: CLEMASTINE
     Dates: start: 20210722, end: 20210722
  35. MAGNESIUM [Concomitant]
     Active Substance: MAGNESIUM
     Dates: start: 20210628, end: 20210714

REACTIONS (7)
  - Diarrhoea [Recovered/Resolved]
  - Off label use [Unknown]
  - Vomiting [Unknown]
  - Infusion related reaction [Recovered/Resolved]
  - Dyspnoea [Unknown]
  - Cytokine release syndrome [Recovered/Resolved]
  - Anaemia [Recovered/Resolved]

NARRATIVE: CASE EVENT DATE: 20210413
